FAERS Safety Report 4449252-2 (Version None)
Quarter: 2004Q3

REPORT INFORMATION
  Report Type: 
  Country: None (occurrence: None)
  Receive Date: 20040913
  Receipt Date: 20040901
  Transmission Date: 20050211
  Serious: Yes (Hospitalization)
  Sender: FDA-Public Use
  Company Number: S04-USA-04605-01

PATIENT
  Age: 83 Year
  Sex: Male

DRUGS (22)
  1. MEMANTINE HCL [Suspect]
     Indication: DEMENTIA ALZHEIMER'S TYPE
     Dosage: 10 MG BID PO
     Route: 048
     Dates: start: 20040601
  2. CELEXA [Suspect]
     Indication: DEPRESSION
     Dosage: 20 MG QD PO
     Route: 048
     Dates: end: 20040601
  3. CELEXA [Suspect]
     Indication: DEPRESSION
     Dosage: 20 MG QD PO
     Route: 048
     Dates: start: 20040601
  4. EXELON [Suspect]
     Indication: DEMENTIA ALZHEIMER'S TYPE
     Dosage: 12 MG BID
     Route: 048
     Dates: end: 20040601
  5. EXELON [Suspect]
     Indication: DEMENTIA ALZHEIMER'S TYPE
     Dosage: 6 MG BID
     Dates: start: 20040701
  6. ELAVIL [Concomitant]
  7. XANAX [Concomitant]
  8. NPH INSULIN [Concomitant]
  9. REGULAR INSULIN [Concomitant]
  10. ATENOLOL [Concomitant]
  11. ATACAND [Concomitant]
  12. ZOCOR [Concomitant]
  13. PLAVIX [Concomitant]
  14. SYNTHROID [Concomitant]
  15. PROTONIX [Concomitant]
  16. UNIPHYL [Concomitant]
  17. COMBIVENT [Concomitant]
  18. ADVAIR DISKUS 100/50 [Concomitant]
  19. COSOPT [Concomitant]
  20. XALATAN [Concomitant]
  21. ASPIRIN [Concomitant]
  22. REGULAR INSULIN [Concomitant]

REACTIONS (9)
  - ASPARTATE AMINOTRANSFERASE DECREASED [None]
  - BLOOD ALKALINE PHOSPHATASE INCREASED [None]
  - BLOOD PRESSURE DIASTOLIC DECREASED [None]
  - DEMENTIA [None]
  - HYPOGLYCAEMIA [None]
  - METABOLIC ENCEPHALOPATHY [None]
  - MULTIPLE DRUG OVERDOSE [None]
  - SINUS BRADYCARDIA [None]
  - WHITE BLOOD CELL COUNT INCREASED [None]
